FAERS Safety Report 6943861-4 (Version None)
Quarter: 2010Q3

REPORT INFORMATION
  Report Type: 
  Country: None (occurrence: None)
  Receive Date: 20100826
  Receipt Date: 20100819
  Transmission Date: 20110219
  Serious: Yes (Hospitalization)
  Sender: FDA-Public Use
  Company Number: A0876743A

PATIENT
  Age: 63 Year
  Sex: Male

DRUGS (2)
  1. VOTRIENT [Suspect]
     Route: 048
     Dates: start: 20100201, end: 20100201
  2. BLOOD PRESSURE MEDICATION [Concomitant]

REACTIONS (7)
  - CARDIAC FAILURE CONGESTIVE [None]
  - DYSPNOEA [None]
  - EYE SWELLING [None]
  - PAIN [None]
  - RASH [None]
  - RASH PAPULAR [None]
  - SWELLING [None]
